FAERS Safety Report 11247251 (Version 1)
Quarter: 2015Q3

REPORT INFORMATION
  Report Type: Spontaneous
  Country: JP (occurrence: JP)
  Receive Date: 20150708
  Receipt Date: 20150708
  Transmission Date: 20151125
  Serious: Yes (Hospitalization)
  Sender: FDA-Public Use
  Company Number: PHHY2015JP080004

PATIENT
  Age: 75 Year
  Sex: Female
  Weight: 35.1 kg

DRUGS (9)
  1. VANUTIDE CRIDIFICAR [Suspect]
     Active Substance: VANUTIDE CRIDIFICAR
     Indication: DEMENTIA ALZHEIMER^S TYPE
     Dosage: 30 UG + QS21
     Route: 030
     Dates: start: 20100902, end: 20100902
  2. VANUTIDE CRIDIFICAR [Suspect]
     Active Substance: VANUTIDE CRIDIFICAR
     Dosage: 30 UG + QS21
     Route: 030
     Dates: start: 20110304, end: 20110304
  3. CO-DIOVAN [Suspect]
     Active Substance: HYDROCHLOROTHIAZIDE\VALSARTAN
     Indication: HYPERTENSION
     Dosage: UNK
     Route: 048
     Dates: start: 20100928, end: 20120308
  4. VANUTIDE CRIDIFICAR [Suspect]
     Active Substance: VANUTIDE CRIDIFICAR
     Dosage: 30 UG + QS21
     Route: 030
     Dates: start: 20110902, end: 20110902
  5. VANUTIDE CRIDIFICAR [Suspect]
     Active Substance: VANUTIDE CRIDIFICAR
     Dosage: 30 UG + QS21
     Route: 030
     Dates: start: 20101126, end: 20101126
  6. VANUTIDE CRIDIFICAR [Suspect]
     Active Substance: VANUTIDE CRIDIFICAR
     Dosage: 30 UG + QS21
     Route: 030
     Dates: start: 20110513, end: 20110513
  7. YOKUKANSAN [Suspect]
     Active Substance: HERBALS
     Indication: AGGRESSION
     Dosage: 5 G, BID
     Route: 048
     Dates: start: 20100709
  8. ARICEPT [Suspect]
     Active Substance: DONEPEZIL HYDROCHLORIDE
     Indication: DEMENTIA ALZHEIMER^S TYPE
     Dosage: 5 MG, QD
     Route: 048
     Dates: start: 20100226
  9. CONIEL [Suspect]
     Active Substance: BENIDIPINE HYDROCHLORIDE
     Indication: HYPERTENSION
     Dosage: 4 MG, QD
     Route: 048
     Dates: start: 20100928, end: 20120308

REACTIONS (1)
  - Angina pectoris [Recovered/Resolved]

NARRATIVE: CASE EVENT DATE: 201110
